FAERS Safety Report 16854294 (Version 1)
Quarter: 2019Q3

REPORT INFORMATION
  Report Type: Spontaneous
  Country: GB (occurrence: GB)
  Receive Date: 20190926
  Receipt Date: 20190926
  Transmission Date: 20191005
  Serious: Yes (Other)
  Sender: FDA-Public Use
  Company Number: GB-AUROBINDO-AUR-APL-2019-062424

PATIENT
  Age: 41 Year
  Sex: Male
  Weight: 70 kg

DRUGS (1)
  1. VENLAFAXINE [Suspect]
     Active Substance: VENLAFAXINE HYDROCHLORIDE
     Indication: DEPRESSION
     Dosage: 225 MILLIGRAM
     Route: 048
     Dates: start: 20121120

REACTIONS (24)
  - Retinopathy hypertensive [Not Recovered/Not Resolved]
  - Renal artery stenosis [Unknown]
  - Hyperaesthesia teeth [Unknown]
  - Chills [Unknown]
  - Hypertension [Recovered/Resolved]
  - Retinopathy [Not Recovered/Not Resolved]
  - Carotid arteriosclerosis [Unknown]
  - Fatigue [Unknown]
  - Diarrhoea [Unknown]
  - Back pain [Unknown]
  - Left ventricular enlargement [Unknown]
  - Musculoskeletal pain [Unknown]
  - Ventricular hypertrophy [Unknown]
  - Onychomycosis [Unknown]
  - Glucose tolerance impaired [Unknown]
  - Blood cholesterol increased [Unknown]
  - Vomiting [Unknown]
  - Product dose omission [Unknown]
  - Myalgia [Unknown]
  - Hypoacusis [Unknown]
  - Blood iron decreased [Unknown]
  - Malaise [Unknown]
  - Orthostatic hypotension [Unknown]
  - Vitamin D decreased [Unknown]

NARRATIVE: CASE EVENT DATE: 20121120
